FAERS Safety Report 7981721-0 (Version None)
Quarter: 2011Q4

REPORT INFORMATION
  Report Type: 
  Country: None (occurrence: None)
  Receive Date: 20111215
  Receipt Date: 20111206
  Transmission Date: 20120403
  Serious: Yes (Hospitalization)
  Sender: FDA-Public Use
  Company Number: SE-JNJFOC-20111203147

PATIENT
  Age: 67 Year
  Sex: Female

DRUGS (3)
  1. PALIPERIDONE [Suspect]
     Route: 030
     Dates: start: 20111111
  2. PALIPERIDONE [Suspect]
     Indication: DELUSIONAL DISORDER, UNSPECIFIED TYPE
     Route: 030
     Dates: start: 20111011
  3. PALIPERIDONE [Suspect]
     Route: 030
     Dates: start: 20111003

REACTIONS (5)
  - MENINGITIS [None]
  - UROSEPSIS [None]
  - DRUG DOSE OMISSION [None]
  - FALL [None]
  - URINARY TRACT INFECTION [None]
